FAERS Safety Report 19448988 (Version 4)
Quarter: 2022Q4

REPORT INFORMATION
  Report Type: Spontaneous
  Country: US (occurrence: US)
  Receive Date: 20210622
  Receipt Date: 20221018
  Transmission Date: 20230113
  Serious: Yes (Other)
  Sender: FDA-Public Use
  Company Number: US-PFIZER INC-2017015708

PATIENT
  Age: 71 Year
  Sex: Female

DRUGS (1)
  1. XELJANZ XR [Suspect]
     Active Substance: TOFACITINIB CITRATE
     Dosage: 11 MG, 1X/DAY
     Route: 048

REACTIONS (6)
  - Eye operation [Unknown]
  - Glaucoma [Unknown]
  - Type 2 diabetes mellitus [Unknown]
  - Limb discomfort [Unknown]
  - Pain [Unknown]
  - Hypertension [Unknown]
